FAERS Safety Report 8876030 (Version 1)
Quarter: 2012Q4

REPORT INFORMATION
  Report Type: 
  Country: FR (occurrence: FR)
  Receive Date: 20121023
  Receipt Date: 20121023
  Transmission Date: 20130627
  Serious: Yes (Hospitalization, Other)
  Sender: FDA-Public Use
  Company Number: PHHY2012FR093270

PATIENT
  Age: 87 Year
  Sex: Female

DRUGS (8)
  1. LOXEN LP [Suspect]
     Dosage: 2 DF, daily
     Route: 048
     Dates: end: 20120814
  2. AMIODARONE [Interacting]
     Dosage: 1 DF, daily
     Route: 048
  3. DABIGATRAN ETEXILATE [Interacting]
     Indication: CEREBROVASCULAR ACCIDENT PROPHYLAXIS
     Dosage: 1 DF, BID (in the morning and in the evening)
     Route: 048
     Dates: start: 20120610, end: 20120812
  4. CELECTOL [Concomitant]
     Dosage: 1 DF, daily
  5. APROVEL [Concomitant]
     Dosage: 1 DF, daily
  6. LASILIX [Concomitant]
     Dosage: 20 mg, daily
  7. LEVOTHYROX [Concomitant]
     Dosage: 0.5 DF, daily
  8. IXPRIM [Concomitant]
     Indication: PAIN
     Dosage: UNK UKN, PRN

REACTIONS (8)
  - Pelvic fracture [Recovering/Resolving]
  - Forearm fracture [Recovering/Resolving]
  - Pelvic haematoma [Recovering/Resolving]
  - Traumatic haemorrhage [Recovering/Resolving]
  - Coagulopathy [Recovering/Resolving]
  - Fall [Recovering/Resolving]
  - Renal failure [Recovering/Resolving]
  - Drug interaction [Unknown]
